FAERS Safety Report 25376548 (Version 2)
Quarter: 2025Q3

REPORT INFORMATION
  Report Type: Spontaneous
  Country: EU (occurrence: EU)
  Receive Date: 20250530
  Receipt Date: 20250826
  Transmission Date: 20251021
  Serious: Yes (Hospitalization, Other)
  Sender: BRISTOL-MYERS SQUIBB COMPANY
  Company Number: EU-BRISTOL-MYERS SQUIBB COMPANY-2025-075395

PATIENT
  Age: 65 Year
  Sex: Male

DRUGS (18)
  1. NIVOLUMAB [Suspect]
     Active Substance: NIVOLUMAB
     Indication: Lung adenocarcinoma
     Dates: start: 20230519
  2. NIVOLUMAB [Suspect]
     Active Substance: NIVOLUMAB
     Dates: start: 20230609
  3. NIVOLUMAB [Suspect]
     Active Substance: NIVOLUMAB
     Dates: start: 20230630, end: 20240223
  4. NIVOLUMAB [Suspect]
     Active Substance: NIVOLUMAB
     Dates: start: 20240419, end: 20241128
  5. NIVOLUMAB [Suspect]
     Active Substance: NIVOLUMAB
     Dates: start: 20250130, end: 20250424
  6. NELVUTAMIG [Suspect]
     Active Substance: NELVUTAMIG
     Indication: Lung adenocarcinoma
     Dates: start: 20230519
  7. NELVUTAMIG [Suspect]
     Active Substance: NELVUTAMIG
     Dates: start: 20230630, end: 20240223
  8. NELVUTAMIG [Suspect]
     Active Substance: NELVUTAMIG
     Dates: start: 20240419, end: 20241128
  9. NELVUTAMIG [Suspect]
     Active Substance: NELVUTAMIG
     Dates: start: 20250130, end: 20250424
  10. PACLITAXEL [Suspect]
     Active Substance: PACLITAXEL
     Indication: Lung adenocarcinoma
     Dates: start: 20230519
  11. PACLITAXEL [Suspect]
     Active Substance: PACLITAXEL
     Dates: start: 20230609
  12. CARBOPLATIN [Suspect]
     Active Substance: CARBOPLATIN
     Indication: Lung adenocarcinoma
     Dates: start: 20230519
  13. CARBOPLATIN [Suspect]
     Active Substance: CARBOPLATIN
     Dates: start: 20230609
  14. BISOPROLOL FUMARATE [Concomitant]
     Active Substance: BISOPROLOL FUMARATE
     Indication: Product used for unknown indication
     Dosage: 1-0-0
  15. COROSWERA [Concomitant]
     Indication: Product used for unknown indication
     Dosage: 10 MG + 10 MG 0-0-1
  16. ASPIRIN [Concomitant]
     Active Substance: ASPIRIN
     Indication: Product used for unknown indication
     Dosage: 1-0-0
  17. CLOPIDOGREL BISULFATE [Concomitant]
     Active Substance: CLOPIDOGREL BISULFATE
     Indication: Product used for unknown indication
     Dosage: 1-0-0
  18. OMEPRAZOLE [Concomitant]
     Active Substance: OMEPRAZOLE
     Indication: Product used for unknown indication
     Dosage: 1-0-0

REACTIONS (5)
  - Subclavian artery stenosis [Unknown]
  - Ischaemic stroke [Unknown]
  - Hyperthyroidism [Recovered/Resolved]
  - Myositis [Recovered/Resolved]
  - Skin toxicity [Recovered/Resolved]

NARRATIVE: CASE EVENT DATE: 20230101
